FAERS Safety Report 19167389 (Version 2)
Quarter: 2021Q2

REPORT INFORMATION
  Report Type: Spontaneous
  Country: US (occurrence: US)
  Receive Date: 20210422
  Receipt Date: 20210427
  Transmission Date: 20210717
  Serious: Yes (Other)
  Sender: FDA-Public Use
  Company Number: US-SA-2021SA129225

PATIENT
  Age: 38 Year
  Sex: Male

DRUGS (1)
  1. DUPILUMAB [Suspect]
     Active Substance: DUPILUMAB
     Indication: DERMATITIS ATOPIC
     Dosage: 300 MG, QOW
     Route: 058

REACTIONS (5)
  - Vitritis [Recovering/Resolving]
  - Chorioretinitis [Recovering/Resolving]
  - Chorioretinal atrophy [Recovering/Resolving]
  - Uveitis [Recovering/Resolving]
  - Chorioretinal scar [Recovering/Resolving]
